FAERS Safety Report 22095779 (Version 4)
Quarter: 2023Q2

REPORT INFORMATION
  Report Type: Spontaneous
  Country: CA (occurrence: CA)
  Receive Date: 20230314
  Receipt Date: 20230603
  Transmission Date: 20230721
  Serious: Yes (Other)
  Sender: FDA-Public Use
  Company Number: CA-CELLTRION INC.-2023CA004347

PATIENT

DRUGS (20)
  1. INFLECTRA [Suspect]
     Active Substance: INFLIXIMAB-DYYB
     Indication: Rheumatoid arthritis
     Dosage: (RECEIVED 285 MG TODAY) 1ST DOSE AT WEEK 0 ; THEN 2 WEEKS LATER;THEN Q 6 WEEK
     Route: 042
     Dates: start: 20230217, end: 20230217
  2. INFLECTRA [Suspect]
     Active Substance: INFLIXIMAB-DYYB
     Dosage: W0,W2,W6 WEEKS THEN Q8WEEKS
     Route: 042
     Dates: start: 20230303
  3. INFLECTRA [Suspect]
     Active Substance: INFLIXIMAB-DYYB
     Dosage: 3 MG/KG (W0,W2,W6 WEEKS THEN Q8 WEEKS)
     Route: 042
     Dates: start: 20230303
  4. INFLECTRA [Suspect]
     Active Substance: INFLIXIMAB-DYYB
     Dosage: 3 MG/KG (W0,W2,W6 WEEKS THEN Q8 WEEKS)
     Route: 042
     Dates: start: 20230331
  5. INFLECTRA [Suspect]
     Active Substance: INFLIXIMAB-DYYB
     Dosage: 3 MG/KG (W0,W2,W6 WEEKS THEN Q8 WEEKS)
     Route: 042
     Dates: start: 20230331
  6. INFLECTRA [Suspect]
     Active Substance: INFLIXIMAB-DYYB
     Dosage: 3 MG/KG (W0,W2,W6 WEEKS THEN Q8 WEEKS)
     Route: 042
     Dates: start: 20230331
  7. INFLECTRA [Suspect]
     Active Substance: INFLIXIMAB-DYYB
     Dosage: 3 MG/KG (W0,W2,W6 WEEKS THEN Q8 WEEKS)
     Route: 042
     Dates: start: 20230331
  8. INFLECTRA [Suspect]
     Active Substance: INFLIXIMAB-DYYB
     Dosage: 3 MG/KG (W0,W2,W6 WEEKS THEN Q8 WEEKS)
     Route: 042
     Dates: start: 20230526
  9. METHOTREXATE [Concomitant]
     Active Substance: METHOTREXATE
     Dosage: 12.5 MG, WEEKLY
  10. WELLBUTRIN [Concomitant]
     Active Substance: BUPROPION HYDROCHLORIDE
     Dosage: 360 MG, DAILY
  11. RABEPRAZOLE [Concomitant]
     Active Substance: RABEPRAZOLE
     Dosage: 10 MG
  12. ASPIRIN [Concomitant]
     Active Substance: ASPIRIN
     Dosage: 81 MG, DAILY
  13. CANDESARTAN [Concomitant]
     Active Substance: CANDESARTAN
     Dosage: 8 MG, DAILY
  14. NAPROXEN [Concomitant]
     Active Substance: NAPROXEN
     Dosage: UNK
  15. SERTRALINE [Concomitant]
     Active Substance: SERTRALINE HYDROCHLORIDE
     Dosage: 150 MG, DAILY
  16. OMNARIS [Concomitant]
     Active Substance: CICLESONIDE
     Dosage: PRN
  17. AMLODIPINE [Concomitant]
     Active Substance: AMLODIPINE BESYLATE
     Dosage: 5 MG, DAILY
  18. FOLIC ACID [Concomitant]
     Active Substance: FOLIC ACID
  19. VITAMIN D3 [Concomitant]
     Active Substance: CHOLECALCIFEROL
  20. ACTONEL [Concomitant]
     Active Substance: RISEDRONATE SODIUM
     Dosage: UNK

REACTIONS (6)
  - Systolic hypertension [Recovered/Resolved]
  - Drug ineffective [Unknown]
  - Nausea [Recovered/Resolved]
  - Pyrexia [Not Recovered/Not Resolved]
  - Pain [Not Recovered/Not Resolved]
  - Off label use [Unknown]

NARRATIVE: CASE EVENT DATE: 20230217
